FAERS Safety Report 26205294 (Version 1)
Quarter: 2025Q4

REPORT INFORMATION
  Report Type: Spontaneous
  Country: SA (occurrence: SA)
  Receive Date: 20251228
  Receipt Date: 20251228
  Transmission Date: 20260118
  Serious: Yes (Life-Threatening, Hospitalization, Other)
  Sender: OXFORD PHARMACEUTICALS, LLC
  Company Number: SA-Oxford Pharmaceuticals, LLC-2191457

PATIENT
  Age: 45 Year
  Sex: Male

DRUGS (5)
  1. AMLODIPINE BESYLATE [Suspect]
     Active Substance: AMLODIPINE BESYLATE
     Indication: Hypertension
  2. BACLOFEN [Suspect]
     Active Substance: BACLOFEN
  3. LEVETIRACETAM [Concomitant]
     Active Substance: LEVETIRACETAM
  4. VALSARTAN [Concomitant]
     Active Substance: VALSARTAN
  5. ATORVASTATIN [Concomitant]
     Active Substance: ATORVASTATIN

REACTIONS (7)
  - Cardiogenic shock [Recovered/Resolved]
  - Intentional overdose [Unknown]
  - Hyperglycaemia [Recovered/Resolved]
  - Suicide attempt [Unknown]
  - Acute kidney injury [Recovering/Resolving]
  - Metabolic acidosis [Recovering/Resolving]
  - Coma [Recovering/Resolving]
